FAERS Safety Report 17301357 (Version 1)
Quarter: 2020Q1

REPORT INFORMATION
  Report Type: Spontaneous
  Country: US (occurrence: US)
  Receive Date: 20200106
  Receipt Date: 20200106
  Transmission Date: 20200409
  Serious: Yes (Hospitalization)
  Sender: FDA-Public Use
  Company Number: None

PATIENT
  Age: 25 Year
  Sex: Female

DRUGS (18)
  1. PULMOZYME [Concomitant]
     Active Substance: DORNASE ALFA
  2. SOD CHL 7% [Concomitant]
  3. CYPROHEPTADINE. [Concomitant]
     Active Substance: CYPROHEPTADINE
  4. ENSURE [Concomitant]
     Active Substance: AMINO ACIDS\DEXTROSE\ELECTROLYTES NOS\SOYBEAN OIL\VITAMINS
  5. SENPEP [Concomitant]
  6. PROAIR HFA [Concomitant]
     Active Substance: ALBUTEROL SULFATE
  7. SERTRALINE [Concomitant]
     Active Substance: SERTRALINE HYDROCHLORIDE
  8. BUDESONIDE. [Concomitant]
     Active Substance: BUDESONIDE
  9. CIPROFLOXACIN. [Concomitant]
     Active Substance: CIPROFLOXACIN
  10. COLISTIMETHATE [Concomitant]
     Active Substance: COLISTIMETHATE SODIUM
  11. MEROPENEM. [Concomitant]
     Active Substance: MEROPENEM
  12. PHYTONADIONE. [Concomitant]
     Active Substance: PHYTONADIONE
  13. TOBRAMYCIN NEB SLN [Concomitant]
  14. SMZ/TMP DS [Concomitant]
     Active Substance: SULFAMETHOXAZOLE\TRIMETHOPRIM
  15. TRIKAFTA [Suspect]
     Active Substance: ELEXACAFTOR\IVACAFTOR\TEZACAFTOR
     Indication: CYSTIC FIBROSIS
     Dosage: ?          OTHER FREQUENCY:AM;?
     Route: 048
     Dates: start: 20191113
  16. ONDANSETRON [Concomitant]
     Active Substance: ONDANSETRON
  17. AZITHROMYCIN ANHYDROUS. [Concomitant]
     Active Substance: AZITHROMYCIN ANHYDROUS
  18. PANTOPRAZOLE [Concomitant]
     Active Substance: PANTOPRAZOLE

REACTIONS (1)
  - Bile duct obstruction [None]

NARRATIVE: CASE EVENT DATE: 20191128
